FAERS Safety Report 24742884 (Version 1)
Quarter: 2024Q4

REPORT INFORMATION
  Report Type: Spontaneous
  Country: TN (occurrence: TN)
  Receive Date: 20241217
  Receipt Date: 20241217
  Transmission Date: 20250115
  Serious: Yes (Death, Other)
  Sender: EMD SERONO INC
  Company Number: TN-Merck Healthcare KGaA-2024059652

PATIENT
  Age: 22 Year
  Sex: Female

DRUGS (1)
  1. REBIF [Suspect]
     Active Substance: INTERFERON BETA-1A
     Indication: Product used for unknown indication
     Dosage: FORM OF ADMIN: CARTRIDGES

REACTIONS (3)
  - Ill-defined disorder [Fatal]
  - Transaminases increased [Unknown]
  - Blood bilirubin increased [Unknown]
